FAERS Safety Report 14843379 (Version 5)
Quarter: 2018Q2

REPORT INFORMATION
  Report Type: Spontaneous
  Country: FI (occurrence: FI)
  Receive Date: 20180503
  Receipt Date: 20180626
  Transmission Date: 20180711
  Serious: Yes (Hospitalization, Other)
  Sender: FDA-Public Use
  Company Number: FI-009507513-1805FIN000858

PATIENT
  Age: 96 Year
  Sex: Female

DRUGS (32)
  1. LIXIANA [Suspect]
     Active Substance: EDOXABAN TOSYLATE
     Indication: ATRIAL FIBRILLATION
     Dosage: 30 MG, QD
     Route: 048
     Dates: start: 201710, end: 20180419
  2. MALTOFER [Concomitant]
     Active Substance: IRON POLYMALTOSE
     Indication: PRODUCT USED FOR UNKNOWN INDICATION
     Dosage: 20 DROPS ONCE A DAY FOR AT LEAST 4 MONTHS,
  3. OXYNORM [Concomitant]
     Active Substance: OXYCODONE HYDROCHLORIDE
     Dosage: 5 MG, AS NEEDED
  4. ORUDIS [Concomitant]
     Active Substance: KETOPROFEN
     Indication: PRODUCT USED FOR UNKNOWN INDICATION
     Dosage: UNK, AS NEEDED
  5. PREDNISOLON [Concomitant]
     Active Substance: PREDNISOLONE
     Indication: PRODUCT USED FOR UNKNOWN INDICATION
     Dosage: 5 MG, QOD
  6. VERMAN MINISUN [Concomitant]
     Dosage: 20 MICRO-G, QD
  7. FURESIS [Concomitant]
     Active Substance: FUROSEMIDE
     Dosage: 20 MG, BID
  8. OFTAGEL [Concomitant]
     Active Substance: CARBOMER
     Indication: PRODUCT USED FOR UNKNOWN INDICATION
     Dosage: (OCULAR APPLICATION) TWICE A DAY
     Route: 047
  9. SIMVASTATIN. [Concomitant]
     Active Substance: SIMVASTATIN
     Indication: PRODUCT USED FOR UNKNOWN INDICATION
     Dosage: 1 G, QD
  10. PERINDOPRIL [Concomitant]
     Active Substance: PERINDOPRIL
     Dosage: 4 MG, QD
     Route: 048
  11. FURESIS [Concomitant]
     Active Substance: FUROSEMIDE
     Dosage: 20 MG, BID
  12. CUBITAN [Concomitant]
     Dosage: 1 DF, BID
  13. VITAMIN A [Concomitant]
     Active Substance: VITAMIN A
     Dosage: 2 (UNIT UNSPCIFIED), BID
     Route: 045
  14. JANUVIA [Suspect]
     Active Substance: SITAGLIPTIN PHOSPHATE
     Indication: PRODUCT USED FOR UNKNOWN INDICATION
     Dosage: 50 MG, ONCE A DAY
     Route: 048
  15. FURESIS [Concomitant]
     Active Substance: FUROSEMIDE
     Indication: PRODUCT USED FOR UNKNOWN INDICATION
     Dosage: TWICE A DAY
  16. ABSTRAL [Concomitant]
     Active Substance: FENTANYL CITRATE
     Indication: PRODUCT USED FOR UNKNOWN INDICATION
     Dosage: 100 MICRO-G, 3 TIMES PER 1WK , 15 MINUTES
  17. NORSPAN (BUPRENORPHINE) [Concomitant]
     Dosage: 5 MICRO-G, ONCE EVERY 1 WK
  18. PEGORION [Concomitant]
     Active Substance: POLYETHYLENE GLYCOL 4000
     Indication: PRODUCT USED FOR UNKNOWN INDICATION
     Dosage: 12 G, ONCE A DAY(QD)
  19. CUBITAN [Concomitant]
     Indication: PRODUCT USED FOR UNKNOWN INDICATION
     Dosage: ONE TWICE A DAY
  20. ABSTRAL [Concomitant]
     Active Substance: FENTANYL CITRATE
     Dosage: 100 MICRO-G, 3 TIMES PER 1WK
  21. VERMAN MINISUN [Concomitant]
     Indication: PRODUCT USED FOR UNKNOWN INDICATION
     Dosage: (STRENGTH: 20MCG) ONCE DAY
  22. CUBITAN [Concomitant]
     Dosage: 1 DF, BID
  23. NITROGLYCERIN. [Concomitant]
     Active Substance: NITROGLYCERIN
     Indication: PRODUCT USED FOR UNKNOWN INDICATION
     Dosage: UNK, AS NEEDED
     Route: 060
  24. VITAMIN A [Concomitant]
     Active Substance: VITAMIN A
     Indication: PRODUCT USED FOR UNKNOWN INDICATION
     Dosage: WHEN NEEDED: TWICE ADAY
     Route: 045
  25. NORSPAN (BUPRENORPHINE) [Concomitant]
     Indication: PRODUCT USED FOR UNKNOWN INDICATION
     Dosage: 5 MG, QW
  26. OFTAGEL [Concomitant]
     Active Substance: CARBOMER
     Dosage: 1 DF, BID
     Route: 047
  27. OFTAGEL [Concomitant]
     Active Substance: CARBOMER
     Dosage: UNK
  28. COHEMIN DEPOT [Concomitant]
     Indication: PRODUCT USED FOR UNKNOWN INDICATION
     Dosage: UNK, ONCE EVERY 3 MO
  29. PERINDOPRIL [Concomitant]
     Active Substance: PERINDOPRIL
     Indication: PRODUCT USED FOR UNKNOWN INDICATION
     Dosage: 0.5 TABLET ONCE A DAY
     Route: 048
  30. PREMIER VALUE MULTIVITAL M [Concomitant]
     Indication: PRODUCT USED FOR UNKNOWN INDICATION
     Dosage: ONCE A DAY
  31. OXYNORM [Concomitant]
     Active Substance: OXYCODONE HYDROCHLORIDE
     Indication: PRODUCT USED FOR UNKNOWN INDICATION
     Dosage: WHEN NEEDED: 5 MG ONE 1-4 TIMES A DAY
  32. CERIDAL LIPOLOTION [Concomitant]
     Indication: PRODUCT USED FOR UNKNOWN INDICATION
     Dosage: WHEN NEEDED ON WOULD CARE DAYS (UNK, AS NEEDED)

REACTIONS (3)
  - Myocardial infarction [Unknown]
  - Cerebrovascular accident [Unknown]
  - Confusional state [Not Recovered/Not Resolved]

NARRATIVE: CASE EVENT DATE: 20180418
